FAERS Safety Report 14376085 (Version 1)
Quarter: 2018Q1

REPORT INFORMATION
  Report Type: Spontaneous
  Country: MY (occurrence: MY)
  Receive Date: 20180111
  Receipt Date: 20180111
  Transmission Date: 20180509
  Serious: Yes (Death)
  Sender: FDA-Public Use
  Company Number: MY-NAPPMUNDI-GBR-2017-0052129

PATIENT
  Age: 69 Year
  Sex: Male

DRUGS (1)
  1. OXYCONTIN [Suspect]
     Active Substance: OXYCODONE HYDROCHLORIDE
     Indication: PAIN MANAGEMENT
     Dosage: 10 MG, UNK [STRENGTH 10MG]
     Route: 048

REACTIONS (2)
  - Purpura [Fatal]
  - Metastases to bone [Fatal]
